FAERS Safety Report 5302203-0 (Version None)
Quarter: 2007Q2

REPORT INFORMATION
  Report Type: 
  Country: None (occurrence: None)
  Receive Date: 20070419
  Receipt Date: 20070412
  Transmission Date: 20071010
  Serious: Yes (Other)
  Sender: FDA-Public Use
  Company Number: US-MERCK-0704USA03230

PATIENT

DRUGS (2)
  1. VYTORIN [Suspect]
     Route: 048
  2. [THERAPY UNSPECIFIED] [Concomitant]
     Route: 048

REACTIONS (2)
  - LEUKAEMIA [None]
  - PANCYTOPENIA [None]
